FAERS Safety Report 7238333-6 (Version None)
Quarter: 2011Q1

REPORT INFORMATION
  Report Type: 
  Country: None (occurrence: None)
  Receive Date: 20110121
  Receipt Date: 20101127
  Transmission Date: 20110831
  Serious: Yes (Hospitalization, Other)
  Sender: FDA-Public Use
  Company Number: AU-CEPHALON-2011000237

PATIENT
  Sex: Male
  Weight: 59 kg

DRUGS (12)
  1. TREANDA [Suspect]
     Indication: NON-HODGKIN'S LYMPHOMA
     Route: 042
     Dates: start: 20101125
  2. RITUXIMAB [Suspect]
     Indication: NON-HODGKIN'S LYMPHOMA
     Route: 042
     Dates: start: 20101125
  3. TREANDA [Suspect]
     Route: 042
     Dates: start: 20101130, end: 20101130
  4. METOCLOPRAMIDE [Concomitant]
     Indication: PROPHYLAXIS OF NAUSEA AND VOMITING
     Dates: start: 20101125
  5. LORATADINE [Concomitant]
     Indication: PROPHYLAXIS
     Dates: start: 20101125
  6. TREANDA [Suspect]
     Route: 042
     Dates: start: 20101223, end: 20101223
  7. ALLOPURINOL [Concomitant]
     Indication: PROPHYLAXIS
     Dates: start: 20101119
  8. METOCLOPRAMIDE [Concomitant]
     Route: 048
     Dates: start: 20101130
  9. GRANISETRON HCL [Concomitant]
     Indication: PROPHYLAXIS OF NAUSEA AND VOMITING
     Dates: start: 20101125
  10. PARACETAMOL [Concomitant]
     Indication: PROPHYLAXIS
     Dates: start: 20101125
  11. RITUXIMAB [Suspect]
     Route: 042
     Dates: start: 20101223, end: 20101223
  12. MULTI-VITAMINS [Concomitant]

REACTIONS (3)
  - AGITATION [None]
  - DELIRIUM FEBRILE [None]
  - CONFUSIONAL STATE [None]
